FAERS Safety Report 7503097-5 (Version None)
Quarter: 2011Q2

REPORT INFORMATION
  Report Type: 
  Country: None (occurrence: None)
  Receive Date: 20110525
  Receipt Date: 20101020
  Transmission Date: 20111010
  Serious: No
  Sender: FDA-Public Use
  Company Number: US-NOVEN-ALL1-2010-05465

PATIENT
  Sex: Male
  Weight: 45.351 kg

DRUGS (2)
  1. DAYTRANA [Suspect]
     Dosage: 30 MG, 1X/DAY:QD
     Route: 062
     Dates: start: 20101014
  2. CONCERTA [Concomitant]
     Dosage: 36 MG, 2X/DAY:BID
     Route: 048

REACTIONS (3)
  - ACCIDENTAL EXPOSURE [None]
  - PRODUCT QUALITY ISSUE [None]
  - INCORRECT STORAGE OF DRUG [None]
